FAERS Safety Report 13981770 (Version 1)
Quarter: 2017Q3

REPORT INFORMATION
  Report Type: Spontaneous
  Country: JP (occurrence: JP)
  Receive Date: 20170918
  Receipt Date: 20170918
  Transmission Date: 20171128
  Serious: Yes (Death)
  Sender: FDA-Public Use
  Company Number: JP-CONCORDIA PHARMACEUTICALS INC.-GSH201709-005264

PATIENT
  Age: 76 Year
  Sex: Female

DRUGS (5)
  1. RITUXAN [Suspect]
     Active Substance: RITUXIMAB
  2. CYCLOPHOSPHAMIDE. [Suspect]
     Active Substance: CYCLOPHOSPHAMIDE
  3. VINCRISTINE [Suspect]
     Active Substance: VINCRISTINE
  4. PREDNISOLONE. [Suspect]
     Active Substance: PREDNISOLONE
  5. DOXORUBICIN [Suspect]
     Active Substance: DOXORUBICIN

REACTIONS (1)
  - Disease progression [Fatal]
